FAERS Safety Report 4777695-6 (Version None)
Quarter: 2005Q3

REPORT INFORMATION
  Report Type: 
  Country: None (occurrence: None)
  Receive Date: 20050923
  Receipt Date: 20050718
  Transmission Date: 20060218
  Serious: Yes (Hospitalization)
  Sender: FDA-Public Use
  Company Number: US-MERCK-0507USA03054

PATIENT
  Sex: Female

DRUGS (6)
  1. VIOXX [Suspect]
     Indication: MYALGIA
     Route: 048
     Dates: start: 20010101
  2. VIOXX [Suspect]
     Route: 048
     Dates: start: 20010101
  3. LIPITOR [Concomitant]
     Route: 065
  4. ASPIRIN [Concomitant]
     Route: 065
  5. PLAVIX [Concomitant]
     Route: 065
  6. AVANDIA [Concomitant]
     Route: 065

REACTIONS (4)
  - HEART RATE INCREASED [None]
  - HERNIA REPAIR [None]
  - MYOCARDIAL INFARCTION [None]
  - OVERDOSE [None]
